FAERS Safety Report 24968187 (Version 1)
Quarter: 2025Q1

REPORT INFORMATION
  Report Type: Spontaneous
  Country: CA (occurrence: CA)
  Receive Date: 20250214
  Receipt Date: 20250214
  Transmission Date: 20250409
  Serious: Yes (Death)
  Sender: Pyros Pharmaceuticals
  Company Number: CA-PYROS PHARMACEUTICALS, INC-2025-PYROS-CA000052

PATIENT
  Age: 9 Month
  Sex: Male

DRUGS (3)
  1. VIGABATRIN [Suspect]
     Active Substance: VIGABATRIN
     Indication: Infantile spasms
     Route: 065
  2. PREDNISOLONE [Concomitant]
     Active Substance: PREDNISOLONE
     Indication: Infantile spasms
     Route: 065
  3. PREDNISOLONE [Concomitant]
     Active Substance: PREDNISOLONE
     Dosage: 5 MG, TID

REACTIONS (5)
  - Multiple organ dysfunction syndrome [Fatal]
  - New onset refractory status epilepticus [Fatal]
  - Haemodynamic instability [Fatal]
  - Magnetic resonance imaging head abnormal [Fatal]
  - Toxicity to various agents [Fatal]
